FAERS Safety Report 4572462-0 (Version None)
Quarter: 2005Q1

REPORT INFORMATION
  Report Type: 
  Country: None (occurrence: None)
  Receive Date: 20050207
  Receipt Date: 20041124
  Transmission Date: 20050727
  Serious: Yes (Death, Hospitalization, Disabling)
  Sender: FDA-Public Use
  Company Number: IE-MERCK-0412GBR00022

PATIENT
  Age: 55 Year
  Sex: Male
  Weight: 76 kg

DRUGS (1)
  1. FOSAMAX [Suspect]
     Indication: OSTEOPOROSIS
     Route: 048
     Dates: start: 20031101

REACTIONS (2)
  - DYSPEPSIA [None]
  - RESPIRATORY FAILURE [None]
